FAERS Safety Report 7111388-5 (Version None)
Quarter: 2010Q4

REPORT INFORMATION
  Report Type: 
  Country: None (occurrence: None)
  Receive Date: 20101118
  Receipt Date: 20091218
  Transmission Date: 20110411
  Serious: No
  Sender: FDA-Public Use
  Company Number: US-TEVA-218670USA

PATIENT
  Sex: Male
  Weight: 79.45 kg

DRUGS (10)
  1. ALBUTEROL SULFATE AUTOHALER [Suspect]
     Indication: DYSPNOEA
     Route: 055
     Dates: start: 20091217
  2. SERETIDE [Concomitant]
     Indication: ASTHMA
     Dosage: 250/50
  3. METOPROLOL SUCCINATE [Concomitant]
     Indication: HYPERTENSION
     Route: 048
  4. DOXAZOSIN MESYLATE [Concomitant]
     Indication: HYPERTENSION
     Route: 048
  5. LANSOPRAZOLE [Concomitant]
     Indication: GASTROOESOPHAGEAL REFLUX DISEASE
     Route: 048
  6. WARFARIN SODIUM [Concomitant]
     Route: 048
  7. WARFARIN SODIUM [Concomitant]
     Route: 048
  8. TRAZODONE HCL [Concomitant]
     Indication: ANXIETY
     Route: 048
  9. FUROSEMIDE [Concomitant]
     Route: 048
  10. POTASSIUM CHLORIDE [Concomitant]
     Indication: SUPPLEMENTATION THERAPY
     Route: 048

REACTIONS (1)
  - DYSPNOEA [None]
